FAERS Safety Report 11394429 (Version 1)
Quarter: 2015Q3

REPORT INFORMATION
  Report Type: Spontaneous
  Country: GB (occurrence: GB)
  Receive Date: 20150819
  Receipt Date: 20150819
  Transmission Date: 20151125
  Serious: Yes (Other)
  Sender: FDA-Public Use
  Company Number: GB-JNJFOC-20150808372

PATIENT

DRUGS (1)
  1. INFLIXIMAB, RECOMBINANT [Suspect]
     Active Substance: INFLIXIMAB
     Indication: RHEUMATOID ARTHRITIS
     Route: 042

REACTIONS (6)
  - Breast cancer [Unknown]
  - Gastrooesophageal cancer [Unknown]
  - Neoplasm malignant [Unknown]
  - Lung neoplasm malignant [Unknown]
  - Female reproductive neoplasm [Unknown]
  - Colorectal cancer [Unknown]
